FAERS Safety Report 13495003 (Version 1)
Quarter: 2017Q2

REPORT INFORMATION
  Report Type: Spontaneous
  Country: FR (occurrence: FR)
  Receive Date: 20170428
  Receipt Date: 20170428
  Transmission Date: 20170830
  Serious: Yes (Hospitalization, Congenital Anomaly)
  Sender: FDA-Public Use
  Company Number: FR-ORION CORPORATION ORION PHARMA-TREX2017-1227

PATIENT
  Age: 0 Year
  Sex: Male
  Weight: 1.24 kg

DRUGS (3)
  1. BREXIN [PIROXICAM] [Suspect]
     Active Substance: PIROXICAM BETADEX
     Indication: RHEUMATOID ARTHRITIS
     Route: 064
     Dates: start: 201608, end: 20160902
  2. MONA LISA [Suspect]
     Active Substance: COPPER
     Route: 064
     Dates: start: 201603
  3. IMETH [Suspect]
     Active Substance: METHOTREXATE SODIUM
     Indication: RHEUMATOID ARTHRITIS
     Dosage: STRENGTH: 10 MG
     Route: 064
     Dates: start: 20160902, end: 20161101

REACTIONS (11)
  - Foetal exposure during pregnancy [Recovered/Resolved]
  - Ear malformation [Not Recovered/Not Resolved]
  - Petechiae [Recovered/Resolved]
  - Congenital thrombocytopenia [Recovered/Resolved]
  - Low birth weight baby [Recovering/Resolving]
  - Caesarean section [None]
  - Congenital anaemia [Not Recovered/Not Resolved]
  - Neonatal respiratory distress syndrome [Recovered/Resolved]
  - Foetal growth restriction [Recovering/Resolving]
  - Maternal drugs affecting foetus [None]
  - Premature baby [Recovered/Resolved]

NARRATIVE: CASE EVENT DATE: 20160802
